FAERS Safety Report 14901606 (Version 2)
Quarter: 2018Q3

REPORT INFORMATION
  Report Type: Spontaneous
  Country: US (occurrence: US)
  Receive Date: 20180516
  Receipt Date: 20180821
  Transmission Date: 20181010
  Serious: Yes (Hospitalization)
  Sender: FDA-Public Use
  Company Number: US-PFIZER INC-2018113814

PATIENT
  Age: 87 Year
  Sex: Female

DRUGS (2)
  1. PREPARATION H MEDICATED WIPES [Suspect]
     Active Substance: WITCH HAZEL
     Indication: HAEMORRHOIDS
     Dosage: UNK
     Dates: start: 2016, end: 2016
  2. PREPARATION H MEDICATED WIPES [Suspect]
     Active Substance: WITCH HAZEL
     Dosage: UNK
     Route: 061
     Dates: end: 20180307

REACTIONS (3)
  - Hypersensitivity [Unknown]
  - Dermatitis contact [Unknown]
  - Rash [Unknown]

NARRATIVE: CASE EVENT DATE: 201706
